FAERS Safety Report 5512121-0 (Version None)
Quarter: 2007Q4

REPORT INFORMATION
  Report Type: 
  Country: None (occurrence: None)
  Receive Date: 20071109
  Receipt Date: 20071031
  Transmission Date: 20080405
  Serious: Yes (Other)
  Sender: FDA-Public Use
  Company Number: AU-PFIZER INC-2007093236

PATIENT
  Age: 82 Year
  Sex: Female

DRUGS (8)
  1. LIPITOR [Suspect]
  2. CADUET [Suspect]
     Indication: HYPERTENSION
     Dosage: TEXT:MANE
     Route: 048
     Dates: start: 20070828, end: 20070917
  3. CADUET [Suspect]
     Indication: HYPERLIPIDAEMIA
  4. ACTONEL [Concomitant]
  5. PROTHIADEN [Concomitant]
  6. VITAMIN D [Concomitant]
  7. ATACAND [Concomitant]
  8. DIURETICS [Concomitant]

REACTIONS (3)
  - BLOOD PRESSURE SYSTOLIC INCREASED [None]
  - OEDEMA PERIPHERAL [None]
  - RASH [None]
